FAERS Safety Report 22635488 (Version 1)
Quarter: 2023Q2

REPORT INFORMATION
  Report Type: Spontaneous
  Country: CN (occurrence: CN)
  Receive Date: 20230623
  Receipt Date: 20230623
  Transmission Date: 20230721
  Serious: Yes (Other)
  Sender: FDA-Public Use
  Company Number: CN-009507513-2306CHN009989

PATIENT
  Age: 59 Year
  Sex: Male
  Weight: 68 kg

DRUGS (7)
  1. KEYTRUDA [Suspect]
     Active Substance: PEMBROLIZUMAB
     Indication: Salivary gland cancer
     Dosage: UNK
     Dates: start: 20230410, end: 20230410
  2. KEYTRUDA [Suspect]
     Active Substance: PEMBROLIZUMAB
     Dosage: 200 MILLIGRAM, ONCE, THE SECOND CYCLE
     Route: 041
     Dates: start: 20230503, end: 20230503
  3. GEMCITABINE HYDROCHLORIDE [Suspect]
     Active Substance: GEMCITABINE HYDROCHLORIDE
     Indication: Salivary gland cancer
     Dosage: UNK
     Dates: start: 20230410
  4. GEMCITABINE HYDROCHLORIDE [Suspect]
     Active Substance: GEMCITABINE HYDROCHLORIDE
     Dosage: 1800 MILLIGRAM, ONCE
     Route: 041
     Dates: start: 20230504, end: 20230504
  5. GEMCITABINE HYDROCHLORIDE [Suspect]
     Active Substance: GEMCITABINE HYDROCHLORIDE
     Dosage: 1800 MILLIGRAM, ONCE
     Route: 041
     Dates: start: 20230511, end: 20230511
  6. CISPLATIN [Suspect]
     Active Substance: CISPLATIN
     Indication: Salivary gland cancer
     Dosage: UNK
     Dates: start: 20230410
  7. CISPLATIN [Suspect]
     Active Substance: CISPLATIN
     Dosage: 35 MILLIGRAM, ONCE DOSE 2 TO DOSE 4 (D1-D4)
     Route: 041
     Dates: start: 20230504, end: 20230506

REACTIONS (2)
  - Myelosuppression [Recovering/Resolving]
  - Inappropriate schedule of product administration [Unknown]

NARRATIVE: CASE EVENT DATE: 20230418
